FAERS Safety Report 14517284 (Version 1)
Quarter: 2018Q1

REPORT INFORMATION
  Report Type: Spontaneous
  Country: FR (occurrence: FR)
  Receive Date: 20180212
  Receipt Date: 20180212
  Transmission Date: 20180509
  Serious: Yes (Other)
  Sender: FDA-Public Use
  Company Number: FR-MERCK KGAA-2041775

PATIENT
  Age: 63 Year
  Sex: Female
  Weight: 90 kg

DRUGS (9)
  1. BETASERC [Concomitant]
     Active Substance: BETAHISTINE
     Route: 048
  2. NOVOTHYROX [Suspect]
     Active Substance: LEVOTHYROXINE SODIUM
     Indication: THYROIDECTOMY
     Route: 048
     Dates: start: 201704, end: 201709
  3. EUTHYROX [Concomitant]
     Active Substance: LEVOTHYROXINE SODIUM
     Route: 048
     Dates: start: 201709
  4. GLUCOPHAGE [Concomitant]
     Active Substance: METFORMIN HYDROCHLORIDE
     Route: 048
  5. FLECAINE LP [Concomitant]
     Active Substance: FLECAINIDE
     Route: 048
  6. ELIQUIS [Concomitant]
     Active Substance: APIXABAN
     Route: 048
  7. DIAMICRON [Concomitant]
     Active Substance: GLICLAZIDE
     Route: 048
  8. KALEORID LP [Concomitant]
     Active Substance: POTASSIUM CHLORIDE
  9. LODOZ [Concomitant]
     Active Substance: BISOPROLOL FUMARATE\HYDROCHLOROTHIAZIDE
     Route: 048

REACTIONS (12)
  - Gastrointestinal disorder [Recovered/Resolved]
  - Balance disorder [Recovered/Resolved]
  - Cold sweat [Recovered/Resolved]
  - Diarrhoea [Recovered/Resolved]
  - Weight decreased [Recovered/Resolved]
  - Blood thyroid stimulating hormone decreased [Recovered/Resolved]
  - Decreased appetite [Recovered/Resolved]
  - Diabetes mellitus inadequate control [Recovered/Resolved]
  - Tachycardia [Recovered/Resolved]
  - Vertigo [Recovered/Resolved]
  - Asthenia [Recovered/Resolved]
  - Insomnia [Recovered/Resolved]

NARRATIVE: CASE EVENT DATE: 201706
